FAERS Safety Report 4412940-8 (Version None)
Quarter: 2004Q3

REPORT INFORMATION
  Report Type: 
  Country: None (occurrence: None)
  Receive Date: 20040802
  Receipt Date: 20030625
  Transmission Date: 20050211
  Serious: No
  Sender: FDA-Public Use
  Company Number: US-GLAXOSMITHKLINE-A0413933A

PATIENT
  Age: 2 Month
  Sex: Female

DRUGS (1)
  1. ZANTAC [Suspect]
     Dosage: 6ML TWICE PER DAY
     Route: 048
     Dates: start: 20030621

REACTIONS (1)
  - ACCIDENTAL OVERDOSE [None]
